FAERS Safety Report 17065415 (Version 2)
Quarter: 2020Q1

REPORT INFORMATION
  Report Type: Report from Study
  Country: US (occurrence: US)
  Receive Date: 20191122
  Receipt Date: 20200309
  Transmission Date: 20200409
  Serious: Yes (Life-Threatening, Hospitalization, Other)
  Sender: FDA-Public Use
  Company Number: US-GLAXOSMITHKLINE-US2019TSO180722

PATIENT
  Age: 80 Year
  Sex: Female
  Weight: 49 kg

DRUGS (2)
  1. NIRAPARIB [Suspect]
     Active Substance: NIRAPARIB
     Indication: OVARIAN CANCER
     Dosage: 300 MG, DAILY IN THE EVENING AFTER EATING SNACK
     Route: 048
     Dates: start: 20191002, end: 20191022
  2. AVASTIN [Suspect]
     Active Substance: BEVACIZUMAB
     Indication: OVARIAN CANCER
     Dosage: UNK
     Dates: start: 20191002

REACTIONS (9)
  - Thrombocytopenia [Recovered/Resolved]
  - Vomiting [Recovered/Resolved]
  - Drug intolerance [Recovered/Resolved]
  - Malaise [Not Recovered/Not Resolved]
  - Product use issue [Unknown]
  - Platelet count decreased [Recovered/Resolved]
  - Nausea [Recovered/Resolved]
  - Constipation [Recovering/Resolving]
  - Asthenia [Unknown]

NARRATIVE: CASE EVENT DATE: 201910
